FAERS Safety Report 10070442 (Version 1)
Quarter: 2014Q2

REPORT INFORMATION
  Report Type: Spontaneous
  Country: US (occurrence: None)
  Receive Date: 20140409
  Receipt Date: 20140409
  Transmission Date: 20141212
  Serious: No
  Sender: FDA-Public Use
  Company Number: None

PATIENT
  Age: 75 Year
  Sex: Female

DRUGS (2)
  1. STIVARGA [Suspect]
     Indication: GASTROINTESTINAL CARCINOMA
     Route: 048
     Dates: start: 20130705
  2. STIVARGA [Suspect]
     Indication: ILL-DEFINED DISORDER
     Route: 048
     Dates: start: 20130705

REACTIONS (2)
  - Urinary incontinence [None]
  - Visual impairment [None]
